FAERS Safety Report 4322633-3 (Version None)
Quarter: 2004Q1

REPORT INFORMATION
  Report Type: 
  Country: None (occurrence: None)
  Receive Date: 20040324
  Receipt Date: 20040322
  Transmission Date: 20041129
  Serious: Yes (Hospitalization)
  Sender: FDA-Public Use
  Company Number: WAES 0403DEU00138

PATIENT
  Age: 68 Year
  Sex: Female
  Weight: 95 kg

DRUGS (7)
  1. ASPIRIN [Suspect]
     Indication: CEREBROVASCULAR ACCIDENT PROPHYLAXIS
     Route: 048
     Dates: start: 19980101
  2. BUPRENORPHINE HYDROCHLORIDE [Concomitant]
     Indication: PAIN
     Route: 061
     Dates: start: 20021101
  3. CAFFEINE [Concomitant]
     Indication: MIGRAINE
     Route: 048
     Dates: start: 20010101
  4. GARLIC EXTRACT [Suspect]
     Indication: PROPHYLAXIS
     Route: 048
     Dates: start: 19980101
  5. METFORMIN HYDROCHLORIDE [Concomitant]
     Indication: DIABETES MELLITUS
     Route: 048
     Dates: start: 19970101
  6. VIOXX [Suspect]
     Indication: PAIN
     Route: 048
  7. RUSCOGENIN [Concomitant]
     Indication: VENOUS INSUFFICIENCY
     Route: 048
     Dates: start: 20000101

REACTIONS (5)
  - DIVERTICULUM INTESTINAL [None]
  - DRUG INTERACTION [None]
  - RECTAL ADENOMA [None]
  - RECTAL HAEMORRHAGE [None]
  - RECTAL POLYP [None]
